FAERS Safety Report 4742702-3 (Version None)
Quarter: 2005Q3

REPORT INFORMATION
  Report Type: 
  Country: None (occurrence: None)
  Receive Date: 20050810
  Receipt Date: 20050810
  Transmission Date: 20060218
  Serious: Yes (Death, Life-Threatening, Hospitalization)
  Sender: FDA-Public Use
  Company Number: None

PATIENT
  Age: 54 Year
  Sex: Male
  Weight: 38 kg

DRUGS (13)
  1. CISPLATIN [Suspect]
     Indication: METASTATIC GASTRIC CANCER
     Dosage: 25 IV
     Route: 042
     Dates: start: 20050503, end: 20050726
  2. CPT-11 (MG/M2) D1 AND D8 OF 21-DAY CYCLE [Suspect]
     Indication: METASTATIC GASTRIC CANCER
     Dosage: 45.5 IV
     Route: 042
     Dates: start: 20050503, end: 20050726
  3. CONTINUOUS INFUSION 5-FU (MG/M2) D1-14 [Suspect]
     Indication: METASTATIC GASTRIC CANCER
     Dosage: 280 IV
     Route: 042
     Dates: start: 20050504, end: 20050729
  4. COMPAZINE [Concomitant]
  5. LEVAQUIN [Concomitant]
  6. SIMETHICONE [Concomitant]
  7. ZOFRAN [Concomitant]
  8. MYCOSTATIN POWDER [Concomitant]
  9. NYSTATIN ELIXIR [Concomitant]
  10. OXANDRIN [Concomitant]
  11. REGLAN [Concomitant]
  12. ZYPREXA [Concomitant]
  13. MIRACLE MOUTHWASH [Concomitant]

REACTIONS (24)
  - ANASTOMOTIC LEAK [None]
  - CARDIO-RESPIRATORY ARREST [None]
  - DEEP VEIN THROMBOSIS [None]
  - DEHYDRATION [None]
  - DIARRHOEA [None]
  - DISORIENTATION [None]
  - DYSPNOEA [None]
  - EFFUSION [None]
  - FLANK PAIN [None]
  - HEPARIN-INDUCED THROMBOCYTOPENIA [None]
  - HYPOTENSION [None]
  - IMMUNOSUPPRESSION [None]
  - INFECTION [None]
  - LUNG DISORDER [None]
  - MALNUTRITION [None]
  - NEUTROPENIA [None]
  - OXYGEN SATURATION DECREASED [None]
  - PNEUMOMEDIASTINUM [None]
  - PNEUMONIA FUNGAL [None]
  - PNEUMOPERITONEUM [None]
  - PULMONARY EMBOLISM [None]
  - PULMONARY OEDEMA [None]
  - TACHYCARDIA [None]
  - WHITE BLOOD CELL COUNT ABNORMAL [None]
